FAERS Safety Report 9240969 (Version 1)
Quarter: 2013Q2

REPORT INFORMATION
  Report Type: Spontaneous
  Country: US (occurrence: US)
  Receive Date: 20130419
  Receipt Date: 20130419
  Transmission Date: 20140414
  Serious: No
  Sender: FDA-Public Use
  Company Number: US-SANOFI-AVENTIS-2013SA017086

PATIENT
  Sex: Female

DRUGS (1)
  1. LOVENOX [Suspect]

REACTIONS (1)
  - Drug administered at inappropriate site [Unknown]
